FAERS Safety Report 15805297 (Version 1)
Quarter: 2019Q1

REPORT INFORMATION
  Report Type: Spontaneous
  Country: US (occurrence: US)
  Receive Date: 20190110
  Receipt Date: 20190110
  Transmission Date: 20190417
  Serious: No
  Sender: FDA-Public Use
  Company Number: US-009507513-1812USA007549

PATIENT
  Age: 13 Year
  Sex: Female
  Weight: 80.27 kg

DRUGS (4)
  1. SYMBYAX [Concomitant]
     Active Substance: FLUOXETINE HYDROCHLORIDE\OLANZAPINE
     Dosage: UNK
  2. NEXPLANON [Suspect]
     Active Substance: ETONOGESTREL
     Indication: CONTRACEPTION
     Dosage: 68 MG, 3 YEARS AGO, IN ARM
     Route: 059
     Dates: start: 2015, end: 20181210
  3. LITHIUM. [Concomitant]
     Active Substance: LITHIUM
  4. NEXPLANON [Suspect]
     Active Substance: ETONOGESTREL
     Dosage: A NEW NEXPLANON
     Route: 059
     Dates: start: 20181210

REACTIONS (4)
  - Product use in unapproved indication [Unknown]
  - Implant site pain [Recovering/Resolving]
  - Device breakage [Recovered/Resolved]
  - Complication of device removal [Recovered/Resolved]

NARRATIVE: CASE EVENT DATE: 2015
